FAERS Safety Report 4932886-6 (Version None)
Quarter: 2006Q1

REPORT INFORMATION
  Report Type: 
  Country: None (occurrence: None)
  Receive Date: 20060306
  Receipt Date: 20060220
  Transmission Date: 20060701
  Serious: Yes (Death, Hospitalization)
  Sender: FDA-Public Use
  Company Number: APCDSS2003000642

PATIENT
  Sex: Female
  Weight: 42.3 kg

DRUGS (5)
  1. CLADRIBINE [Suspect]
     Route: 041
  2. CLADRIBINE [Suspect]
     Route: 041
  3. CLADRIBINE [Suspect]
     Indication: HAIRY CELL LEUKAEMIA
     Route: 041
  4. ACYCLOVIR [Concomitant]
     Route: 042
  5. CEFOZOPRAN HYDROCHLORIDE [Concomitant]
     Indication: SEPSIS
     Route: 042

REACTIONS (5)
  - FALL [None]
  - FEMUR FRACTURE [None]
  - HAIRY CELL LEUKAEMIA [None]
  - PANCYTOPENIA [None]
  - SEPSIS [None]
